FAERS Safety Report 11451871 (Version 1)
Quarter: 2015Q3

REPORT INFORMATION
  Report Type: Spontaneous
  Country: US (occurrence: US)
  Receive Date: 20150903
  Receipt Date: 20150903
  Transmission Date: 20151125
  Serious: Yes (Other)
  Sender: FDA-Public Use
  Company Number: US-ACTAVIS-2015-18674

PATIENT
  Age: 42 Year
  Sex: Male

DRUGS (2)
  1. QUETIAPINE (AGPTC) [Suspect]
     Active Substance: QUETIAPINE
     Indication: INTENTIONAL PRODUCT MISUSE
     Dosage: 3 TO 4 TABLETS OF 200 MG
     Route: 065
  2. GABAPENTIN (AELLC) [Suspect]
     Active Substance: GABAPENTIN
     Indication: INTENTIONAL PRODUCT MISUSE
     Dosage: UP TO 5 TABLETS OF 300 MG
     Route: 065

REACTIONS (4)
  - Euphoric mood [Unknown]
  - Intentional product misuse [Unknown]
  - Sedation [Unknown]
  - Drug abuse [Unknown]
